FAERS Safety Report 13735564 (Version 1)
Quarter: 2017Q3

REPORT INFORMATION
  Report Type: Spontaneous
  Country: US (occurrence: US)
  Receive Date: 20170709
  Receipt Date: 20170709
  Transmission Date: 20171127
  Serious: Yes (Hospitalization, Disabling, Other)
  Sender: FDA-Public Use
  Company Number: None

PATIENT
  Age: 59 Year
  Sex: Female
  Weight: 90 kg

DRUGS (21)
  1. PLAQUENIL [Suspect]
     Active Substance: HYDROXYCHLOROQUINE SULFATE
     Indication: RHEUMATOID ARTHRITIS
     Dosage: ?          OTHER STRENGTH:MG;QUANTITY:2 TABLET(S);?
     Route: 048
     Dates: start: 20161101, end: 20170620
  2. TRINTELLIX [Concomitant]
     Active Substance: VORTIOXETINE HYDROBROMIDE
  3. TRAZODONE [Concomitant]
     Active Substance: TRAZODONE HYDROCHLORIDE
  4. STOOL SOFTENER (DOCUSATE) [Concomitant]
     Active Substance: DOCUSATE
  5. B6 [Concomitant]
     Active Substance: PYRIDOXINE HYDROCHLORIDE
  6. ENTERIC COATED 81MG ASPIRIN [Concomitant]
  7. CALCIUM [Concomitant]
     Active Substance: CALCIUM
  8. ALBUTEROL INHALER [Concomitant]
     Active Substance: ALBUTEROL
  9. SKELAXIN [Concomitant]
     Active Substance: METAXALONE
  10. CRANBURY [Concomitant]
  11. FLONASE [Concomitant]
     Active Substance: FLUTICASONE PROPIONATE
  12. MONTELUKAST SOD [Suspect]
     Active Substance: MONTELUKAST SODIUM
     Indication: BRONCHIECTASIS
     Dosage: ?          OTHER STRENGTH:MG;QUANTITY:1 TABLET(S);?
     Route: 048
     Dates: start: 20030601, end: 20170702
  13. BENZTROPINE [Concomitant]
     Active Substance: BENZTROPINE
  14. LORAZEPAM. [Concomitant]
     Active Substance: LORAZEPAM
  15. GEODON [Concomitant]
     Active Substance: ZIPRASIDONE HYDROCHLORIDE\ZIPRASIDONE MESYLATE
  16. FISH OIL [Concomitant]
     Active Substance: FISH OIL
  17. TURMERIC [Concomitant]
     Active Substance: HERBALS\TURMERIC
  18. MULTIVITAMIN [Concomitant]
     Active Substance: VITAMINS
  19. VITAMIN D3 [Concomitant]
     Active Substance: CHOLECALCIFEROL
  20. MAGNESIUM [Concomitant]
     Active Substance: MAGNESIUM
  21. ZYRTEC [Concomitant]
     Active Substance: CETIRIZINE HYDROCHLORIDE

REACTIONS (3)
  - Abnormal behaviour [None]
  - Psychotic disorder [None]
  - Mood altered [None]

NARRATIVE: CASE EVENT DATE: 20170603
